FAERS Safety Report 8380632-9 (Version None)
Quarter: 2012Q2

REPORT INFORMATION
  Report Type: 
  Country: None (occurrence: None)
  Receive Date: 20120523
  Receipt Date: 20120517
  Transmission Date: 20120825
  Serious: Yes (Death)
  Sender: FDA-Public Use
  Company Number: JP-ROCHE-794487

PATIENT
  Age: 63 Year
  Sex: Male
  Weight: 52 kg

DRUGS (53)
  1. XELODA [Suspect]
     Route: 048
     Dates: start: 20110520, end: 20110603
  2. OXALIPLATIN [Suspect]
     Route: 041
     Dates: start: 20110520, end: 20110520
  3. EMEND [Concomitant]
     Route: 048
     Dates: start: 20110610, end: 20110610
  4. KYTRIL [Concomitant]
     Route: 041
     Dates: start: 20110722, end: 20110722
  5. DECADRON [Concomitant]
     Route: 041
     Dates: start: 20110722, end: 20110722
  6. XELODA [Suspect]
     Indication: COLON CANCER METASTATIC
     Dosage: DRUG REPORTED AS : XELODA 300
     Route: 048
  7. EMEND [Concomitant]
     Route: 048
     Dates: start: 20110520, end: 20110520
  8. EMEND [Concomitant]
     Route: 048
     Dates: start: 20110521, end: 20110522
  9. DECADRON [Concomitant]
     Route: 048
     Dates: start: 20110521, end: 20110522
  10. MOTILIUM [Concomitant]
     Route: 048
     Dates: start: 20110428, end: 20110504
  11. PRAVASTATIN SODIUM [Concomitant]
     Route: 048
     Dates: start: 20110701, end: 20110701
  12. KYTRIL [Concomitant]
     Route: 041
     Dates: start: 20110610, end: 20110610
  13. OXALIPLATIN [Suspect]
     Indication: COLON CANCER METASTATIC
     Dosage: DOSE : 130 MG/M2
     Route: 041
     Dates: start: 20110427, end: 20110427
  14. OXALIPLATIN [Suspect]
     Route: 041
     Dates: start: 20110722, end: 20110722
  15. AMOBAN [Concomitant]
     Dosage: WHEN IT IS NOT POSSIBLE TO SLEEP
     Route: 048
  16. MAGNESIUM OXIDE [Concomitant]
     Route: 048
  17. EMEND [Concomitant]
     Route: 048
     Dates: start: 20110611, end: 20110612
  18. DECADRON [Concomitant]
     Route: 048
     Dates: start: 20110611, end: 20110612
  19. DECADRON [Concomitant]
     Route: 048
     Dates: start: 20110702, end: 20110703
  20. DECADRON [Concomitant]
     Route: 041
     Dates: start: 20110610, end: 20110610
  21. XELODA [Suspect]
     Dosage: DRUG STOPPED IN : JULY 2011
     Route: 048
  22. FAMOTIDINE [Concomitant]
     Route: 048
     Dates: start: 20110610, end: 20110701
  23. EMEND [Concomitant]
     Route: 048
     Dates: start: 20110702, end: 20110703
  24. EMEND [Concomitant]
     Route: 048
     Dates: start: 20110722, end: 20110722
  25. CHLOR-TRIMETON [Concomitant]
     Route: 041
     Dates: start: 20110427, end: 20110427
  26. AVASTIN [Suspect]
     Dosage: DOSE: 410.25 MG
     Route: 041
     Dates: start: 20110610, end: 20110610
  27. EMEND [Concomitant]
     Route: 048
     Dates: start: 20110723, end: 20110724
  28. DECADRON [Concomitant]
     Route: 048
     Dates: start: 20110428, end: 20110429
  29. CANDESARTAN CILEXETIL [Concomitant]
     Route: 048
     Dates: start: 20110520, end: 20110701
  30. AVASTIN [Suspect]
     Indication: COLON CANCER METASTATIC
     Dosage: DOSE: 410.25 MG
     Route: 041
     Dates: start: 20110427, end: 20110427
  31. OXALIPLATIN [Suspect]
     Route: 041
     Dates: start: 20110701, end: 20110701
  32. HIRUDOID [Concomitant]
     Dosage: CREAM.  PROPER QUANTITY
     Route: 003
  33. EMEND [Concomitant]
     Route: 048
     Dates: start: 20110427, end: 20110427
  34. EMEND [Concomitant]
     Route: 048
     Dates: start: 20110428, end: 20110429
  35. EMEND [Concomitant]
     Route: 048
     Dates: start: 20110701, end: 20110701
  36. FENTANYL-100 [Concomitant]
     Route: 062
     Dates: start: 20110506, end: 20110701
  37. CHLOR-TRIMETON [Concomitant]
     Route: 041
     Dates: start: 20110610, end: 20110610
  38. DECADRON [Concomitant]
     Route: 041
     Dates: start: 20110520, end: 20110520
  39. WHITE PETROLEUM [Concomitant]
     Dosage: PROPER QUANTITY
     Route: 003
  40. DECADRON [Concomitant]
     Route: 048
     Dates: start: 20110723, end: 20110724
  41. FENTANYL-100 [Concomitant]
     Dosage: FORM : TAPE
     Route: 062
     Dates: start: 20110428, end: 20110503
  42. FENTANYL-100 [Concomitant]
     Route: 062
     Dates: start: 20110501, end: 20110506
  43. KYTRIL [Concomitant]
     Route: 041
     Dates: start: 20110427, end: 20110427
  44. KYTRIL [Concomitant]
     Route: 041
     Dates: start: 20110520, end: 20110520
  45. DECADRON [Concomitant]
     Route: 041
     Dates: start: 20110427, end: 20110427
  46. XELODA [Suspect]
     Route: 048
     Dates: start: 20110610, end: 20110624
  47. XELODA [Suspect]
     Route: 048
     Dates: start: 20110701, end: 20110715
  48. OXALIPLATIN [Suspect]
     Route: 041
     Dates: start: 20110610, end: 20110610
  49. VITAMIN A [Concomitant]
     Dosage: DRUG : SAHNE (VITAMIN A OIL) CREAM.  PROPER QUANTITY
     Route: 003
     Dates: start: 20110426, end: 20110701
  50. FAMOTIDINE [Concomitant]
     Route: 048
     Dates: start: 20110427, end: 20110610
  51. KYTRIL [Concomitant]
     Route: 048
     Dates: start: 20110428, end: 20110428
  52. CHLOR-TRIMETON [Concomitant]
     Route: 041
     Dates: start: 20110520, end: 20110520
  53. CHLOR-TRIMETON [Concomitant]
     Route: 041
     Dates: start: 20110722, end: 20110722

REACTIONS (4)
  - DISEASE PROGRESSION [None]
  - HYPERTENSION [None]
  - DEATH [None]
  - PALMAR-PLANTAR ERYTHRODYSAESTHESIA SYNDROME [None]
